FAERS Safety Report 26179726 (Version 1)
Quarter: 2025Q4

REPORT INFORMATION
  Report Type: Report from Study
  Country: EU (occurrence: EU)
  Receive Date: 20251219
  Receipt Date: 20251219
  Transmission Date: 20260117
  Serious: Yes (Hospitalization)
  Sender: SANOFI AVENTIS
  Company Number: EU-SA-2025SA014163

PATIENT
  Age: 73 Year
  Sex: Male

DRUGS (29)
  1. ISATUXIMAB [Suspect]
     Active Substance: ISATUXIMAB
     Indication: Plasma cell myeloma refractory
     Dosage: 905 MG, QW
     Dates: start: 20240415, end: 20240506
  2. ISATUXIMAB [Suspect]
     Active Substance: ISATUXIMAB
     Dosage: 905 MG, BIW
     Dates: start: 20240513, end: 20240527
  3. ISATUXIMAB [Suspect]
     Active Substance: ISATUXIMAB
     Dosage: 905 MG, BIW
     Dates: start: 20240610, end: 20240624
  4. ISATUXIMAB [Suspect]
     Active Substance: ISATUXIMAB
     Dosage: 905 MG, BIW
     Dates: start: 20240708
  5. DEXAMETHASONE [Suspect]
     Active Substance: DEXAMETHASONE
     Indication: Plasma cell myeloma refractory
     Dosage: 20 MG, 1X
     Dates: start: 20240507, end: 20240507
  6. DEXAMETHASONE [Suspect]
     Active Substance: DEXAMETHASONE
     Dosage: 20 MG
     Dates: start: 20240603, end: 20240604
  7. DEXAMETHASONE [Suspect]
     Active Substance: DEXAMETHASONE
     Dosage: 20 MG(1,2,8,9,15,16)
     Dates: start: 20240610, end: 20240625
  8. DEXAMETHASONE [Suspect]
     Active Substance: DEXAMETHASONE
     Dosage: 20 MG
     Dates: start: 20240729, end: 20240730
  9. CARFILZOMIB [Suspect]
     Active Substance: CARFILZOMIB
     Indication: Plasma cell myeloma refractory
     Dosage: 109 MG(1,2,8,9,15,16)
     Dates: start: 20240415, end: 20240430
  10. CARFILZOMIB [Suspect]
     Active Substance: CARFILZOMIB
     Dosage: 109 MG(1,2,8,9,15,16)
     Dates: start: 20240513, end: 20240528
  11. CARFILZOMIB [Suspect]
     Active Substance: CARFILZOMIB
     Dosage: 109 MG(1,2,8,9,15,16)
     Dates: start: 20240610, end: 20240625
  12. CARFILZOMIB [Suspect]
     Active Substance: CARFILZOMIB
     Dosage: 109 MG(1,2,8,9,15,16)
     Dates: start: 20240708, end: 20240723
  13. RAMIPRIL [Concomitant]
     Active Substance: RAMIPRIL
     Indication: Hypertension
     Dosage: UNK
     Dates: start: 20110119
  14. FLUTICASONE [Concomitant]
     Active Substance: FLUTICASONE
     Indication: Chronic obstructive pulmonary disease
     Dosage: UNK
     Dates: start: 20180109
  15. GLYCOPYRROLATE [Concomitant]
     Active Substance: GLYCOPYRROLATE
     Indication: Chronic obstructive pulmonary disease
     Dosage: UNK
     Dates: start: 20180706
  16. INDACATEROL [Concomitant]
     Active Substance: INDACATEROL
     Indication: Chronic obstructive pulmonary disease
     Dosage: UNK
     Dates: start: 20180706
  17. ALLOPURINOL [Concomitant]
     Active Substance: ALLOPURINOL
     Indication: Hypergammaglobulinaemia benign monoclonal
     Dosage: UNK
     Dates: start: 20180827
  18. EMPAGLIFLOZIN [Concomitant]
     Active Substance: EMPAGLIFLOZIN
     Indication: Diabetes mellitus
     Dosage: UNK
     Dates: start: 20190610
  19. ATORVASTATIN [Concomitant]
     Active Substance: ATORVASTATIN
     Indication: Dyslipidaemia
     Dosage: UNK
     Dates: start: 20190610
  20. ATORVASTATIN [Concomitant]
     Active Substance: ATORVASTATIN
     Dosage: UNK
     Dates: start: 20240522
  21. OMEPRAZOLE [Concomitant]
     Active Substance: OMEPRAZOLE
     Indication: Prophylaxis
     Dosage: UNK
     Dates: start: 20210531
  22. ACETAMINOPHEN [Concomitant]
     Active Substance: ACETAMINOPHEN
     Indication: Pain
     Dosage: UNK
     Dates: start: 20240208
  23. CYANOCOBALAMIN [Concomitant]
     Active Substance: CYANOCOBALAMIN
     Indication: Supplementation therapy
     Dosage: UNK
     Dates: start: 20240222
  24. CALCIUM\ERGOCALCIFEROL [Concomitant]
     Active Substance: CALCIUM\ERGOCALCIFEROL
     Indication: Supplementation therapy
     Dosage: UNK
     Dates: start: 20240226
  25. SITAGLIPTIN [Concomitant]
     Active Substance: SITAGLIPTIN
     Indication: Diabetes mellitus
     Dosage: UNK
     Dates: start: 20240904
  26. ACETAMINOPHEN [Concomitant]
     Active Substance: ACETAMINOPHEN
     Indication: Premedication
     Dosage: UNK UNK, QCY
     Dates: start: 20240412
  27. DEXCHLORPHENIRAMINE [Concomitant]
     Active Substance: DEXCHLORPHENIRAMINE
     Indication: Premedication
     Dosage: UNK UNK, QCY
     Dates: start: 20240412
  28. DEXAMETHASONE [Concomitant]
     Active Substance: DEXAMETHASONE
     Indication: Premedication
     Dosage: UNK UNK, QCY
     Dates: start: 20240412
  29. MONTELUKAST [Concomitant]
     Active Substance: MONTELUKAST
     Indication: Premedication
     Dosage: UNK UNK, QCY
     Dates: start: 20240412

REACTIONS (2)
  - Respiratory tract infection [Recovered/Resolved]
  - Respiratory tract infection [Recovered/Resolved]

NARRATIVE: CASE EVENT DATE: 20250113
